FAERS Safety Report 10924892 (Version 1)
Quarter: 2015Q1

REPORT INFORMATION
  Report Type: Spontaneous
  Country: GB (occurrence: GB)
  Receive Date: 20150318
  Receipt Date: 20150318
  Transmission Date: 20150721
  Serious: Yes (Life-Threatening, Hospitalization, Other)
  Sender: FDA-Public Use
  Company Number: GB-AUROBINDO-AUR-APL-2015-02154

PATIENT
  Age: 70 Year
  Sex: Male
  Weight: 112 kg

DRUGS (4)
  1. AMLODIPINE [Concomitant]
     Active Substance: AMLODIPINE BESYLATE
     Indication: PRODUCT USED FOR UNKNOWN INDICATION
     Dosage: 10 MG, ONCE A DAY
     Route: 065
  2. AMOXYCILLIN                        /00249601/ [Concomitant]
     Indication: PRODUCT USED FOR UNKNOWN INDICATION
     Dosage: 500 MG, 3 TIMES A DAY
     Route: 065
     Dates: start: 20141215, end: 20141218
  3. RAMIPRIL 10MG [Suspect]
     Active Substance: RAMIPRIL
     Indication: HYPERTENSION
     Dosage: 10 MG, ONCE A DAY (TAKEN FOR MORE THAN 10 YEARS)
     Route: 048
     Dates: end: 20141223
  4. ASPIRIN. [Concomitant]
     Active Substance: ASPIRIN
     Indication: PRODUCT USED FOR UNKNOWN INDICATION
     Dosage: 75 MG, ONCE A DAY
     Route: 065

REACTIONS (8)
  - Peripheral swelling [Recovered/Resolved with Sequelae]
  - Anaphylactic reaction [Recovered/Resolved with Sequelae]
  - Wheezing [Recovered/Resolved with Sequelae]
  - Local swelling [Recovered/Resolved with Sequelae]
  - Tryptase increased [Unknown]
  - Swelling face [Recovered/Resolved with Sequelae]
  - Urticaria [Recovered/Resolved with Sequelae]
  - Angioedema [Recovered/Resolved with Sequelae]

NARRATIVE: CASE EVENT DATE: 20141223
